FAERS Safety Report 8908431 (Version 1)
Quarter: 2012Q4

REPORT INFORMATION
  Report Type: 
  Country: US (occurrence: US)
  Receive Date: 20121114
  Receipt Date: 20121114
  Transmission Date: 20130627
  Serious: No
  Sender: FDA-Public Use
  Company Number: US-PFIZER INC-2012284165

PATIENT
  Age: 66 Year
  Sex: Female
  Weight: 66.21 kg

DRUGS (1)
  1. ZOLOFT [Suspect]
     Indication: MAJOR DEPRESSION
     Dosage: UNK
     Dates: start: 2010

REACTIONS (1)
  - Blood test abnormal [Unknown]
